FAERS Safety Report 23336169 (Version 5)
Quarter: 2024Q4

REPORT INFORMATION
  Report Type: Report from Study
  Country: MX (occurrence: MX)
  Receive Date: 20231225
  Receipt Date: 20241005
  Transmission Date: 20250115
  Serious: Yes (Hospitalization, Other)
  Sender: NOVARTIS
  Company Number: MX-002147023-NVSC2023MX234809

PATIENT
  Sex: Female
  Weight: 70.5 kg

DRUGS (10)
  1. TASIGNA [Suspect]
     Active Substance: NILOTINIB
     Indication: Chronic myeloid leukaemia
     Dosage: 1 DOSAGE FORM, BID
     Route: 048
  2. TASIGNA [Suspect]
     Active Substance: NILOTINIB
     Dosage: 2 DOSAGE FORM
     Route: 065
  3. TASIGNA [Suspect]
     Active Substance: NILOTINIB
     Dosage: 3 DOSAGE FORM
     Route: 065
  4. TASIGNA [Suspect]
     Active Substance: NILOTINIB
     Dosage: 2 DOSAGE FORM, QD (1 IN THE MORNING AND 1 AT NIGHT)
     Route: 065
  5. TASIGNA [Suspect]
     Active Substance: NILOTINIB
     Dosage: 1 DOSAGE FORM, BID (IN THE MORNING AND AT NIGHT)
     Route: 048
  6. TASIGNA [Suspect]
     Active Substance: NILOTINIB
     Dosage: 800 MG (2 CAPSULES OF 200 MG IN THE MORNING AND 2  CAPSULES OF 200 MG IN THE AFTERNOON)
     Route: 065
  7. TASIGNA [Suspect]
     Active Substance: NILOTINIB
     Dosage: 200 MG (1 CAPSULE OF 200 MG DAILY).
     Route: 065
  8. TASIGNA [Suspect]
     Active Substance: NILOTINIB
     Dosage: 400 MG  (1 OF 200  MG AND  1 OF 200  MG)  (CURRENT  DOSE) IN THE MORNING  AND IN THE AFTERNOON
     Route: 048
  9. TASIGNA [Suspect]
     Active Substance: NILOTINIB
     Dosage: 400 MG (2 DOSAGE FORM OF 200 MG), BID
     Route: 048
     Dates: start: 2024, end: 2024
  10. IMATINIB [Suspect]
     Active Substance: IMATINIB
     Indication: Product used for unknown indication
     Dosage: UNK
     Route: 065

REACTIONS (21)
  - Renal abscess [Unknown]
  - Renal failure [Unknown]
  - Nephrolithiasis [Unknown]
  - Acne [Unknown]
  - Bite [Unknown]
  - Skin exfoliation [Unknown]
  - Hypersensitivity [Unknown]
  - Pruritus [Unknown]
  - Colitis [Unknown]
  - Scar [Unknown]
  - Feeling hot [Not Recovered/Not Resolved]
  - Pain [Unknown]
  - Gastritis [Unknown]
  - Gastrointestinal inflammation [Unknown]
  - Constipation [Unknown]
  - Decreased appetite [Unknown]
  - Abdominal distension [Unknown]
  - Abdominal pain upper [Unknown]
  - Rash [Recovered/Resolved]
  - Inappropriate schedule of product administration [Unknown]
  - Skin hypertrophy [Unknown]
